FAERS Safety Report 24874846 (Version 1)
Quarter: 2025Q1

REPORT INFORMATION
  Report Type: Spontaneous
  Country: IT (occurrence: GB)
  Receive Date: 20250122
  Receipt Date: 20250122
  Transmission Date: 20250409
  Serious: Yes (Other)
  Sender: MYLAN
  Company Number: IT-MYLANLABS-2025M1005069

PATIENT
  Age: 48 Year
  Sex: Female

DRUGS (6)
  1. SERTRALINE [Suspect]
     Active Substance: SERTRALINE HYDROCHLORIDE
     Indication: Insomnia
     Route: 065
  2. SERTRALINE [Suspect]
     Active Substance: SERTRALINE HYDROCHLORIDE
     Indication: Anxiety
  3. MIRTAZAPINE [Suspect]
     Active Substance: MIRTAZAPINE
     Indication: Insomnia
     Route: 065
  4. MIRTAZAPINE [Suspect]
     Active Substance: MIRTAZAPINE
     Indication: Anxiety
  5. CITALOPRAM [Suspect]
     Active Substance: CITALOPRAM
     Indication: Insomnia
     Route: 065
  6. CITALOPRAM [Suspect]
     Active Substance: CITALOPRAM
     Indication: Anxiety

REACTIONS (4)
  - Drug dependence [Unknown]
  - Suicidal ideation [Unknown]
  - Depressed mood [Unknown]
  - Condition aggravated [Unknown]
